FAERS Safety Report 6341546-9 (Version None)
Quarter: 2009Q3

REPORT INFORMATION
  Report Type: 
  Country: None (occurrence: None)
  Receive Date: 20090904
  Receipt Date: 20090902
  Transmission Date: 20100115
  Serious: Yes (Other)
  Sender: FDA-Public Use
  Company Number: DE-BRISTOL-MYERS SQUIBB COMPANY-14500664

PATIENT
  Age: 35 Year
  Sex: Female
  Weight: 60 kg

DRUGS (1)
  1. ABILIFY [Suspect]
     Indication: PSYCHOTIC DISORDER
     Route: 048
     Dates: start: 20060301, end: 20081117

REACTIONS (5)
  - CAESAREAN SECTION [None]
  - LIVE BIRTH [None]
  - PREGNANCY [None]
  - PREMATURE LABOUR [None]
  - SLEEP DISORDER [None]
